FAERS Safety Report 8658629 (Version 2)
Quarter: 2014Q2

REPORT INFORMATION
  Report Type: Spontaneous
  Country: US (occurrence: US)
  Receive Date: 20120710
  Receipt Date: 20140506
  Transmission Date: 20141212
  Serious: Yes (Hospitalization, Other)
  Sender: FDA-Public Use
  Company Number: US-ASTRAZENECA-2011SE34497

PATIENT
  Age: 69 Year
  Sex: Female
  Weight: 56.7 kg

DRUGS (16)
  1. NEXIUM [Suspect]
     Indication: BARRETT^S OESOPHAGUS
     Route: 048
  2. NEXIUM [Suspect]
     Indication: THROAT TIGHTNESS
     Route: 048
  3. NEXIUM [Suspect]
     Indication: BARRETT^S OESOPHAGUS
     Route: 048
  4. NEXIUM [Suspect]
     Indication: THROAT TIGHTNESS
     Route: 048
  5. TOPROL XL [Suspect]
     Route: 048
  6. PLAQUINIL [Concomitant]
     Indication: ARTHRITIS
     Route: 048
     Dates: start: 1999
  7. B12 INJECTION [Concomitant]
     Indication: ANAEMIA
     Dosage: MONTH
  8. ESTRAL [Concomitant]
     Indication: HORMONE THERAPY
     Route: 048
     Dates: start: 2012
  9. FLOMAX [Concomitant]
     Indication: DYSURIA
     Route: 048
     Dates: start: 2010
  10. LASIX [Concomitant]
     Indication: SWELLING
     Route: 048
     Dates: start: 2008
  11. ZOLOFT [Concomitant]
     Indication: SLEEP DISORDER
     Route: 048
     Dates: start: 2011
  12. POTASSIUM CHLORIDE [Concomitant]
     Route: 048
     Dates: start: 2008
  13. VIT B12 [Concomitant]
     Indication: ANAEMIA
     Route: 048
     Dates: start: 2000
  14. MACRO [Concomitant]
     Indication: ANTIBIOTIC THERAPY
     Route: 048
  15. KLONOPIN [Concomitant]
     Indication: PAIN
     Route: 048
     Dates: start: 2008
  16. KLONOPIN [Concomitant]
     Indication: ILL-DEFINED DISORDER
     Route: 048
     Dates: start: 2008

REACTIONS (16)
  - Myocardial infarction [Unknown]
  - Self injurious behaviour [Unknown]
  - Pneumonia [Unknown]
  - Dysphagia [Unknown]
  - Chronic obstructive pulmonary disease [Unknown]
  - Cardiac failure congestive [Unknown]
  - Hypotension [Unknown]
  - Malaise [Unknown]
  - Weight decreased [Unknown]
  - Swelling [Unknown]
  - Bladder prolapse [Unknown]
  - Urinary tract infection [Unknown]
  - Dyspnoea [Unknown]
  - Arthralgia [Unknown]
  - Off label use [Unknown]
  - Off label use [Unknown]
